FAERS Safety Report 14525853 (Version 1)
Quarter: 2018Q1

REPORT INFORMATION
  Report Type: Spontaneous
  Country: US (occurrence: US)
  Receive Date: 20180213
  Receipt Date: 20180213
  Transmission Date: 20180509
  Serious: Yes (Hospitalization, Other)
  Sender: FDA-Public Use
  Company Number: US-AUROBINDO-AUR-APL-2018-005701

PATIENT
  Age: 60 Year
  Sex: Male

DRUGS (1)
  1. DEXAMETHASONE. [Suspect]
     Active Substance: DEXAMETHASONE
     Indication: LEPTOMENINGEAL MYELOMATOSIS
     Route: 065

REACTIONS (3)
  - Intracranial pressure increased [Unknown]
  - Meningitis cryptococcal [Unknown]
  - Cardiac arrest [Unknown]
